FAERS Safety Report 15169462 (Version 1)
Quarter: 2018Q3

REPORT INFORMATION
  Report Type: Spontaneous
  Country: FR (occurrence: FR)
  Receive Date: 20180720
  Receipt Date: 20180720
  Transmission Date: 20181010
  Serious: Yes (Life-Threatening)
  Sender: FDA-Public Use
  Company Number: FR-TEVA-2018-FR-929423

PATIENT
  Age: 75 Year
  Sex: Female
  Weight: 70 kg

DRUGS (9)
  1. APROVEL 300 MG, COMPRIM? [Concomitant]
     Active Substance: IRBESARTAN
     Indication: HYPERTENSION
     Dosage: 300 MILLIGRAM DAILY;
     Route: 048
  2. MIANSERINE (CHLORHYDRATE DE) [Concomitant]
     Active Substance: MIANSERIN HYDROCHLORIDE
     Indication: DEPRESSION
     Dosage: 30 MILLIGRAM DAILY;
     Route: 048
  3. SERTRALINE (CHLORHYDRATE DE) [Suspect]
     Active Substance: SERTRALINE HYDROCHLORIDE
     Indication: SUICIDE ATTEMPT
     Route: 065
     Dates: start: 20171106, end: 20171106
  4. SERESTA 10 MG, COMPRIM? [Suspect]
     Active Substance: OXAZEPAM
     Indication: SUICIDE ATTEMPT
     Route: 048
     Dates: start: 20171106, end: 20171106
  5. SECALIP 300 MG, G?LULE [Concomitant]
     Indication: DYSLIPIDAEMIA
     Dosage: 300 MILLIGRAM DAILY;
     Route: 048
  6. TANAKAN 40 MG, COMPRIM? ENROB? [Concomitant]
     Indication: COGNITIVE DISORDER
     Dosage: 120 MILLIGRAM DAILY;
     Route: 048
  7. STALEVO 75 MG/18,75 MG/200 MG, COMPRIM? PELLICUL? [Concomitant]
     Indication: PARKINSON^S DISEASE
     Dosage: 225 MILLIGRAM DAILY;
     Route: 048
  8. AZILECT 1 MG, COMPRIM? [Concomitant]
     Indication: PARKINSON^S DISEASE
     Dosage: 1 MILLIGRAM DAILY;
     Route: 048
  9. CALTRATE WITH VITAMIN D [Concomitant]
     Active Substance: CALCIUM CARBONATE\CHOLECALCIFEROL
     Dosage: 2 DOSAGE FORMS DAILY;
     Route: 048

REACTIONS (5)
  - Vomiting [Recovered/Resolved]
  - Altered state of consciousness [Recovered/Resolved]
  - Toxicity to various agents [Recovered/Resolved]
  - Hypothermia [Recovered/Resolved]
  - Respiratory distress [Recovered/Resolved]

NARRATIVE: CASE EVENT DATE: 20171106
